FAERS Safety Report 8573897-1 (Version None)
Quarter: 2012Q3

REPORT INFORMATION
  Report Type: 
  Country: None (occurrence: None)
  Receive Date: 20120806
  Receipt Date: 20120502
  Transmission Date: 20120928
  Serious: Yes (Other)
  Sender: FDA-Public Use
  Company Number: US-GLAXOSMITHKLINE-A0976134A

PATIENT
  Age: 7 Year
  Sex: Male

DRUGS (4)
  1. SINGULAIR [Concomitant]
  2. CLARITIN [Concomitant]
  3. FLUTICASONE PROPIONATE [Suspect]
     Indication: ASTHMA
     Dosage: 2PUFF TWICE PER DAY
     Route: 055
     Dates: start: 20101101
  4. VERAMYST [Concomitant]

REACTIONS (4)
  - ADRENAL INSUFFICIENCY [None]
  - BLOOD CORTISOL DECREASED [None]
  - FATIGUE [None]
  - PAIN [None]
